FAERS Safety Report 25893035 (Version 3)
Quarter: 2025Q4

REPORT INFORMATION
  Report Type: Spontaneous
  Country: US (occurrence: US)
  Receive Date: 20251008
  Receipt Date: 20251023
  Transmission Date: 20260117
  Serious: No
  Sender: ABBVIE
  Company Number: US-ABBVIE-6490456

PATIENT
  Sex: Male

DRUGS (1)
  1. HUMIRA [Suspect]
     Active Substance: ADALIMUMAB
     Indication: Crohn^s disease
     Dosage: 1 PEN
     Route: 058

REACTIONS (3)
  - Autism spectrum disorder [Unknown]
  - Wrong technique in product usage process [Unknown]
  - Off label use [Unknown]
